FAERS Safety Report 20017669 (Version 1)
Quarter: 2021Q4

REPORT INFORMATION
  Report Type: Spontaneous
  Country: None (occurrence: DE)
  Receive Date: 20211031
  Receipt Date: 20211031
  Transmission Date: 20220303
  Serious: Yes (Life-Threatening, Hospitalization, Disabling)
  Sender: FDA-Public Use
  Company Number: DE-Nostrum Laboratories, Inc.-2121239

PATIENT
  Age: 19 Year
  Sex: Male

DRUGS (2)
  1. METHADONE HYDROCHLORIDE [Suspect]
     Active Substance: METHADONE HYDROCHLORIDE
     Indication: Drug abuse
     Route: 040
  2. CANNABIS SATIVA SUBSP. INDICA TOP [Concomitant]
     Active Substance: CANNABIS SATIVA SUBSP. INDICA TOP
     Route: 065

REACTIONS (4)
  - Toxic encephalopathy [Recovered/Resolved with Sequelae]
  - Drug-induced liver injury [Recovered/Resolved]
  - Rhabdomyolysis [Recovered/Resolved]
  - Cognitive disorder [Not Recovered/Not Resolved]
